FAERS Safety Report 15782054 (Version 2)
Quarter: 2020Q2

REPORT INFORMATION
  Report Type: Spontaneous
  Country: US (occurrence: US)
  Receive Date: 20190102
  Receipt Date: 20200409
  Transmission Date: 20200713
  Serious: No
  Sender: FDA-Public Use
  Company Number: US-PFIZER INC-2018537176

PATIENT
  Age: 31 Year
  Sex: Male

DRUGS (1)
  1. LYRICA [Suspect]
     Active Substance: PREGABALIN
     Dosage: UNK

REACTIONS (4)
  - Drug hypersensitivity [Unknown]
  - Nephropathy [Unknown]
  - Intentional product misuse [Unknown]
  - Stress [Unknown]
